FAERS Safety Report 6162468-2 (Version None)
Quarter: 2009Q2

REPORT INFORMATION
  Report Type: 
  Country: None (occurrence: None)
  Receive Date: 20090421
  Receipt Date: 20090415
  Transmission Date: 20091009
  Serious: Yes (Hospitalization, Other)
  Sender: FDA-Public Use
  Company Number: PHHY2009IL14394

PATIENT
  Age: 48 Year

DRUGS (3)
  1. CYCLOSPORINE [Suspect]
     Indication: LIVER TRANSPLANT
  2. MYCOPHENOLIC ACID [Suspect]
     Indication: LIVER TRANSPLANT
  3. STEROIDS NOS [Suspect]

REACTIONS (5)
  - HEPATIC ENCEPHALOPATHY [None]
  - HEPATITIS C [None]
  - PORTAL VEIN THROMBOSIS [None]
  - SPLENORENAL SHUNT [None]
  - VASCULAR GRAFT [None]
